FAERS Safety Report 9017979 (Version 2)
Quarter: 2013Q1

REPORT INFORMATION
  Report Type: Spontaneous
  Country: FR (occurrence: FR)
  Receive Date: 20130118
  Receipt Date: 20130201
  Transmission Date: 20140127
  Serious: Yes (Death, Other)
  Sender: FDA-Public Use
  Company Number: FR-RANBAXY-2013R1-64246

PATIENT
  Sex: 0

DRUGS (1)
  1. BENAZEPRIL [Suspect]
     Dosage: UNK
     Route: 064

REACTIONS (3)
  - Renal impairment [Unknown]
  - Foetal exposure during pregnancy [Recovered/Resolved]
  - Death [Fatal]
